FAERS Safety Report 24924193 (Version 1)
Quarter: 2025Q1

REPORT INFORMATION
  Report Type: Spontaneous
  Country: GB (occurrence: GB)
  Receive Date: 20250204
  Receipt Date: 20250204
  Transmission Date: 20250408
  Serious: Yes (Death, Hospitalization, Other)
  Sender: GILEAD
  Company Number: GB-GILEAD-2025-0702662

PATIENT

DRUGS (1)
  1. TECARTUS [Suspect]
     Active Substance: BREXUCABTAGENE AUTOLEUCEL
     Indication: Acute lymphocytic leukaemia
     Route: 065
     Dates: start: 20250113, end: 20250113

REACTIONS (4)
  - Death [Fatal]
  - Immune effector cell-associated neurotoxicity syndrome [Fatal]
  - Cytokine release syndrome [Fatal]
  - Sepsis [Fatal]

NARRATIVE: CASE EVENT DATE: 20250204
